FAERS Safety Report 8770197 (Version 3)
Quarter: 2012Q4

REPORT INFORMATION
  Report Type: 
  Country: US (occurrence: US)
  Receive Date: 20120905
  Receipt Date: 20120920
  Transmission Date: 20130627
  Serious: Yes (Other)
  Sender: FDA-Public Use
  Company Number: CHPA2012US018914

PATIENT
  Sex: Female

DRUGS (2)
  1. VOLTAREN GEL [Suspect]
     Indication: LIGAMENT RUPTURE
     Dosage: 2 g, BID
     Route: 061
     Dates: start: 201208, end: 201208
  2. VOLTAREN GEL [Suspect]
     Dosage: More than 8 grams, QD
     Dates: start: 201208, end: 20120824

REACTIONS (9)
  - Dental caries [Recovered/Resolved]
  - Oral discomfort [Recovered/Resolved]
  - Swollen tongue [Recovered/Resolved]
  - Dyspnoea [Recovered/Resolved]
  - Pain [Recovered/Resolved]
  - Therapeutic response unexpected [Unknown]
  - Off label use [Unknown]
  - Wrong technique in drug usage process [Unknown]
  - Drug administered at inappropriate site [Unknown]
